FAERS Safety Report 16648150 (Version 2)
Quarter: 2019Q3

REPORT INFORMATION
  Report Type: Spontaneous
  Country: US (occurrence: US)
  Receive Date: 20190730
  Receipt Date: 20190730
  Transmission Date: 20191004
  Serious: Yes (Death)
  Sender: FDA-Public Use
  Company Number: PHHY2019US176335

PATIENT
  Age: 74 Year
  Sex: Male

DRUGS (8)
  1. MYCOPHENOLATE MOFETIL. [Suspect]
     Active Substance: MYCOPHENOLATE MOFETIL
     Indication: IMMUNOSUPPRESSANT DRUG THERAPY
  2. CICLOSPORIN [Suspect]
     Active Substance: CYCLOSPORINE
     Indication: LUNG TRANSPLANT
     Dosage: UNK
     Route: 065
  3. PREDNISONE. [Suspect]
     Active Substance: PREDNISONE
     Indication: LUNG TRANSPLANT
     Dosage: UNK
     Route: 065
  4. PREDNISONE. [Suspect]
     Active Substance: PREDNISONE
     Indication: IMMUNOSUPPRESSANT DRUG THERAPY
  5. BASILIXIMAB [Concomitant]
     Active Substance: BASILIXIMAB
     Indication: LUNG TRANSPLANT
     Route: 065
  6. CICLOSPORIN [Suspect]
     Active Substance: CYCLOSPORINE
     Indication: IMMUNOSUPPRESSANT DRUG THERAPY
  7. MYCOPHENOLATE MOFETIL. [Suspect]
     Active Substance: MYCOPHENOLATE MOFETIL
     Indication: LUNG TRANSPLANT
     Dosage: UNK
     Route: 065
  8. BASILIXIMAB [Concomitant]
     Active Substance: BASILIXIMAB
     Indication: IMMUNOSUPPRESSANT DRUG THERAPY

REACTIONS (6)
  - Pneumonia [Fatal]
  - Multiple organ dysfunction syndrome [Fatal]
  - Lung infection [Fatal]
  - Sepsis [Fatal]
  - Product use in unapproved indication [Unknown]
  - Mycobacterium abscessus infection [Fatal]
